FAERS Safety Report 4315155-7 (Version None)
Quarter: 2004Q1

REPORT INFORMATION
  Report Type: 
  Country: None (occurrence: None)
  Receive Date: 20040309
  Receipt Date: 20040227
  Transmission Date: 20041129
  Serious: Yes (Death, Hospitalization)
  Sender: FDA-Public Use
  Company Number: 2004-03-0016

PATIENT

DRUGS (7)
  1. INTRON A [Suspect]
     Indication: RENAL CELL CARCINOMA STAGE UNSPECIFIED
     Dosage: INTRAVENOUS
     Route: 042
  2. ASPIRIN [Concomitant]
  3. TRIFLUOPERAZINE HCL [Concomitant]
  4. CO-CODAMOL [Concomitant]
  5. FRUSEMIDE [Concomitant]
  6. WARFARIN SODIUM [Concomitant]
  7. ATENOLOL [Concomitant]

REACTIONS (4)
  - ANAEMIA [None]
  - DYSPNOEA [None]
  - OEDEMA PERIPHERAL [None]
  - PULMONARY HYPERTENSION [None]
